FAERS Safety Report 4815505-9 (Version None)
Quarter: 2005Q4

REPORT INFORMATION
  Report Type: 
  Country: None (occurrence: None)
  Receive Date: 20051027
  Receipt Date: 20051010
  Transmission Date: 20060501
  Serious: Yes (Other)
  Sender: FDA-Public Use
  Company Number: NL-SOLVAY-00305003394

PATIENT
  Sex: Female

DRUGS (2)
  1. TEVETEN [Suspect]
     Indication: HYPERTENSION
     Dosage: 600 MILLIGRAM (S) ORAL
     Route: 048
     Dates: start: 20050222
  2. BETA BLOCKER (BETA BLOCKER) [Concomitant]

REACTIONS (1)
  - FACIAL PALSY [None]
